FAERS Safety Report 20246361 (Version 3)
Quarter: 2022Q1

REPORT INFORMATION
  Report Type: Report from Study
  Country: CA (occurrence: CA)
  Receive Date: 20211229
  Receipt Date: 20220314
  Transmission Date: 20220423
  Serious: Yes (Other)
  Sender: FDA-Public Use
  Company Number: CA-JNJFOC-20211145469

PATIENT
  Age: 19 Year
  Sex: Female
  Weight: 77 kg

DRUGS (2)
  1. REMICADE [Suspect]
     Active Substance: INFLIXIMAB
     Indication: Hidradenitis
     Dosage: EXPIRY DATE:01-FEB-2024.
     Route: 042
     Dates: start: 20210623
  2. REMICADE [Suspect]
     Active Substance: INFLIXIMAB
     Dosage: END DATE ALSO GIVEN AS 21/DEC/2021
     Route: 042
     Dates: end: 20220119

REACTIONS (10)
  - Infusion related reaction [Unknown]
  - Discomfort [Unknown]
  - Anxiety [Not Recovered/Not Resolved]
  - Cough [Unknown]
  - Asthenia [Unknown]
  - Pallor [Unknown]
  - Vomiting [Unknown]
  - Hyperhidrosis [Unknown]
  - Cold sweat [Unknown]
  - Dizziness [Unknown]

NARRATIVE: CASE EVENT DATE: 20211119
